FAERS Safety Report 13451748 (Version 1)
Quarter: 2017Q2

REPORT INFORMATION
  Report Type: Spontaneous
  Country: US (occurrence: US)
  Receive Date: 20170418
  Receipt Date: 20170418
  Transmission Date: 20170830
  Serious: No
  Sender: FDA-Public Use
  Company Number: US-PFIZER INC-2017164413

PATIENT
  Sex: Female

DRUGS (2)
  1. NEURONTIN [Suspect]
     Active Substance: GABAPENTIN
     Dosage: TAKES THAT AT 7PM
  2. NEURONTIN [Suspect]
     Active Substance: GABAPENTIN
     Dosage: TAKES NEURONTIN DURING THE DAY

REACTIONS (1)
  - Insomnia [Not Recovered/Not Resolved]
